FAERS Safety Report 7902619-X (Version None)
Quarter: 2011Q4

REPORT INFORMATION
  Report Type: 
  Country: None (occurrence: None)
  Receive Date: 20111108
  Receipt Date: 20111026
  Transmission Date: 20120403
  Serious: Yes (Hospitalization)
  Sender: FDA-Public Use
  Company Number: US-OPTIMER-20110048

PATIENT

DRUGS (6)
  1. DIAZEPAM [Concomitant]
     Dosage: 10 MG, UNK
  2. LISINOPRIL AND HYDROCHLOROTHIAZIDE [Concomitant]
     Dosage: 20/25 MG
  3. DIFICID [Suspect]
     Indication: CLOSTRIDIAL INFECTION
     Dosage: 200 MG, BID
     Route: 048
     Dates: start: 20110801
  4. OMEPRAZOLE [Concomitant]
     Dosage: 40 MG, UNK
  5. SEIZENTRY [Concomitant]
     Dosage: UNK
  6. TRUVADA [Concomitant]
     Dosage: UNK

REACTIONS (6)
  - BLOOD GLUCOSE INCREASED [None]
  - INFECTION [None]
  - DIARRHOEA [None]
  - INFLAMMATION [None]
  - PYREXIA [None]
  - ABDOMINAL PAIN [None]
